FAERS Safety Report 6253142-2 (Version None)
Quarter: 2009Q2

REPORT INFORMATION
  Report Type: 
  Country: None (occurrence: None)
  Receive Date: 20090629
  Receipt Date: 20090629
  Transmission Date: 20091009
  Serious: No
  Sender: FDA-Public Use
  Company Number: None

PATIENT
  Age: 29 Year
  Sex: Male
  Weight: 64.8644 kg

DRUGS (1)
  1. AFRIN [Suspect]
     Indication: EAR DISCOMFORT
     Dosage: 2 SPRAYS PER DOSE 4 TIMES A YEAR NASAL
     Route: 045
     Dates: start: 19890101, end: 20010630

REACTIONS (2)
  - HYPOGEUSIA [None]
  - HYPOSMIA [None]
